FAERS Safety Report 10565393 (Version 2)
Quarter: 2014Q4

REPORT INFORMATION
  Report Type: Spontaneous
  Country: US (occurrence: US)
  Receive Date: 20141105
  Receipt Date: 20141124
  Transmission Date: 20150529
  Serious: Yes (Hospitalization)
  Sender: FDA-Public Use
  Company Number: US-AUROBINDO-AUR-APL-2014-11606

PATIENT
  Age: 57 Year
  Sex: Female

DRUGS (2)
  1. CLOPIDOGREL [Suspect]
     Active Substance: CLOPIDOGREL BISULFATE
     Indication: ANTIPLATELET THERAPY
     Dosage: 600 MG, LOADING DOSE
     Route: 065
     Dates: start: 201208, end: 201208
  2. ASPIRIN. [Concomitant]
     Active Substance: ASPIRIN
     Indication: ANTIPLATELET THERAPY
     Dosage: 325 MG, SINGLE DOSE
     Route: 065
     Dates: start: 201208, end: 201208

REACTIONS (4)
  - Acute myocardial infarction [Recovering/Resolving]
  - Angina pectoris [Recovering/Resolving]
  - Chest pain [Recovering/Resolving]
  - Coronary artery restenosis [Recovering/Resolving]

NARRATIVE: CASE EVENT DATE: 20120904
